FAERS Safety Report 6521512-0 (Version None)
Quarter: 2009Q4

REPORT INFORMATION
  Report Type: 
  Country: None (occurrence: None)
  Receive Date: 20091230
  Receipt Date: 20091216
  Transmission Date: 20100525
  Serious: No
  Sender: FDA-Public Use
  Company Number: JP-PFIZER INC-2009258939

PATIENT
  Age: 76 Year
  Sex: Female

DRUGS (5)
  1. SELARA [Suspect]
     Dosage: 50 MG, 1X/DAY
     Route: 048
     Dates: start: 20081222, end: 20090623
  2. OLMETEC [Suspect]
     Indication: ESSENTIAL HYPERTENSION
     Dosage: 20 MG, 1X/DAY
     Route: 048
     Dates: start: 20061208
  3. OLMETEC [Suspect]
     Dosage: 20 MG, 1X/DAY
     Route: 048
     Dates: start: 20090623
  4. VALSARTAN [Concomitant]
     Dosage: 80 MG, 1X/DAY
     Route: 048
     Dates: end: 20061208
  5. ALDACTONE [Concomitant]
     Dosage: 25 MG, 1X/DAY
     Route: 048
     Dates: start: 20080616, end: 20081222

REACTIONS (1)
  - HEPATIC FUNCTION ABNORMAL [None]
